FAERS Safety Report 7210350-1 (Version None)
Quarter: 2011Q1

REPORT INFORMATION
  Report Type: 
  Country: None (occurrence: None)
  Receive Date: 20110105
  Receipt Date: 20101231
  Transmission Date: 20110831
  Serious: Yes (Hospitalization)
  Sender: FDA-Public Use
  Company Number: FR-SANOFI-AVENTIS-2010SA078694

PATIENT
  Age: 61 Year
  Sex: Female

DRUGS (5)
  1. ENDOXAN [Concomitant]
     Indication: BREAST CANCER METASTATIC
     Route: 065
     Dates: start: 20101005, end: 20101005
  2. FARMORUBICINE [Concomitant]
     Indication: BREAST CANCER METASTATIC
     Route: 065
     Dates: start: 20101005, end: 20101005
  3. FLUOROURACIL [Concomitant]
     Indication: BREAST CANCER METASTATIC
     Route: 065
     Dates: start: 20101005, end: 20101005
  4. ZOPHREN [Concomitant]
     Indication: BREAST CANCER METASTATIC
     Route: 065
     Dates: start: 20101005, end: 20101005
  5. TAXOTERE [Suspect]
     Indication: BREAST CANCER METASTATIC
     Route: 042
     Dates: start: 20101026, end: 20101026

REACTIONS (1)
  - VASCULAR PURPURA [None]
